FAERS Safety Report 9750883 (Version 1)
Quarter: 2013Q4

REPORT INFORMATION
  Report Type: Report from Study
  Country: US (occurrence: US)
  Receive Date: 20131212
  Receipt Date: 20131212
  Transmission Date: 20140711
  Serious: Yes (Other)
  Sender: FDA-Public Use
  Company Number: US-ABBVIE-13P-163-1175363-00

PATIENT
  Age: 75 Year
  Sex: Female

DRUGS (10)
  1. HUMIRA [Suspect]
     Indication: RHEUMATOID ARTHRITIS
     Dates: start: 200805
  2. FERROUS GLUCONATE [Concomitant]
     Indication: ANAEMIA
  3. NIFEDIPINE XL [Concomitant]
     Indication: HYPERTENSION
  4. OMEPRAZOLE [Concomitant]
     Indication: GASTROOESOPHAGEAL REFLUX DISEASE
  5. METOPROLOL EX [Concomitant]
     Indication: HYPERTENSION
  6. VITAMIN D3 [Concomitant]
     Indication: PRODUCT USED FOR UNKNOWN INDICATION
  7. FORTICAL NASAL SPRAY [Concomitant]
     Indication: OSTEOPOROSIS
     Dosage: ALTERNATING NOSTRILS
  8. LOSARTAN [Concomitant]
     Indication: RENAL DISORDER
  9. AZATHIOPRINE [Concomitant]
     Indication: RHEUMATOID ARTHRITIS
  10. SENNA-LAX [Concomitant]
     Indication: CONSTIPATION
     Dosage: 3-4 TABS DAILY

REACTIONS (9)
  - Bunion [Unknown]
  - Arthrodesis [Unknown]
  - Vaginal haemorrhage [Unknown]
  - Rheumatoid arthritis [Unknown]
  - Irritability [Unknown]
  - Malaise [Unknown]
  - Drug dose omission [Unknown]
  - Device malfunction [Unknown]
  - Injection site haemorrhage [Unknown]
